FAERS Safety Report 8373198-0 (Version None)
Quarter: 2012Q2

REPORT INFORMATION
  Report Type: 
  Country: None (occurrence: None)
  Receive Date: 20120521
  Receipt Date: 20120516
  Transmission Date: 20120825
  Serious: Yes (Other)
  Sender: FDA-Public Use
  Company Number: US-PFIZER INC-2012104063

PATIENT
  Sex: Male
  Weight: 79 kg

DRUGS (2)
  1. LIPITOR [Suspect]
     Indication: BLOOD CHOLESTEROL INCREASED
     Dosage: 40 MG, DAILY
     Route: 048
     Dates: start: 20110801
  2. LIPITOR [Suspect]
     Indication: BLOOD CHOLESTEROL ABNORMAL

REACTIONS (4)
  - FEELING ABNORMAL [None]
  - AMNESIA [None]
  - DEREALISATION [None]
  - INSOMNIA [None]
